FAERS Safety Report 8386933-2 (Version None)
Quarter: 2012Q2

REPORT INFORMATION
  Report Type: 
  Country: None (occurrence: None)
  Receive Date: 20120525
  Receipt Date: 20120518
  Transmission Date: 20120825
  Serious: Yes (Death)
  Sender: FDA-Public Use
  Company Number: CO-JNJFOC-20120517464

PATIENT
  Sex: Male

DRUGS (2)
  1. XARELTO [Suspect]
     Indication: COAGULOPATHY
     Route: 065
     Dates: start: 20120331
  2. XARELTO [Suspect]
     Indication: CARDIAC DISORDER
     Route: 065
     Dates: start: 20120331

REACTIONS (1)
  - DEATH [None]
